FAERS Safety Report 7999510-X (Version None)
Quarter: 2011Q4

REPORT INFORMATION
  Report Type: 
  Country: None (occurrence: None)
  Receive Date: 20111221
  Receipt Date: 20111219
  Transmission Date: 20120403
  Serious: Yes (Other)
  Sender: FDA-Public Use
  Company Number: US-PFIZER INC-2011307832

PATIENT
  Sex: Female
  Weight: 106 kg

DRUGS (4)
  1. CELEBREX [Suspect]
     Indication: OSTEOARTHRITIS
     Dosage: 100 MG, 1X/DAY
     Route: 048
     Dates: start: 20080101, end: 20111217
  2. VITAMIN D [Concomitant]
     Dosage: 50000 IU, UNK
  3. MAGNESIUM [Concomitant]
     Dosage: TWO TABLETS ONCE A DAY
  4. MINOCIN [Concomitant]
     Dosage: 1.25 MG, DAILY

REACTIONS (5)
  - SKIN EXFOLIATION [None]
  - SKIN DISORDER [None]
  - BRONCHITIS [None]
  - SKIN ATROPHY [None]
  - CONTUSION [None]
